FAERS Safety Report 6662084-X (Version None)
Quarter: 2010Q1

REPORT INFORMATION
  Report Type: 
  Country: None (occurrence: None)
  Receive Date: 20100331
  Receipt Date: 20100323
  Transmission Date: 20100710
  Serious: Yes (Other)
  Sender: FDA-Public Use
  Company Number: SE-PFIZER INC-2010001357

PATIENT
  Age: 27 Year
  Sex: Female
  Weight: 73 kg

DRUGS (6)
  1. DIFLUCAN [Suspect]
     Indication: PRURITUS
     Dosage: 150 MG, SINGLE
     Route: 048
     Dates: start: 20090525, end: 20090525
  2. DIFLUCAN [Suspect]
     Dosage: 150 MG, SINGLE
     Route: 048
     Dates: start: 20090615, end: 20090615
  3. FOLIC ACID [Suspect]
     Indication: SUPPLEMENTATION THERAPY
     Dosage: 1 TABLET DAILY
     Route: 048
     Dates: start: 20090622, end: 20090907
  4. NIFEREX [Suspect]
     Indication: MINERAL SUPPLEMENTATION
     Dosage: 1 TABLET DAILY
     Route: 048
     Dates: start: 20090907, end: 20091006
  5. SWINE FLU VACCINE, MONOVALENT [Concomitant]
     Indication: INFLUENZA IMMUNISATION
     Dosage: SINGLE
     Route: 058
     Dates: start: 20091116
  6. VENOFER [Concomitant]
     Indication: MINERAL SUPPLEMENTATION
     Dosage: 12 TOTAL INFUSIONS (2-3 WEEKLY)
     Route: 042
     Dates: start: 20091105

REACTIONS (4)
  - ANAEMIA [None]
  - DIZZINESS [None]
  - NAUSEA [None]
  - VOMITING [None]
